FAERS Safety Report 9143940 (Version 1)
Quarter: 2013Q1

REPORT INFORMATION
  Report Type: Spontaneous
  Country: AU (occurrence: AU)
  Receive Date: 20130306
  Receipt Date: 20130306
  Transmission Date: 20140127
  Serious: Yes (Hospitalization)
  Sender: FDA-Public Use
  Company Number: AU-ASTRAZENECA-2013SE13263

PATIENT
  Age: 923 Month
  Sex: Male

DRUGS (3)
  1. CRESTOR [Suspect]
     Route: 048
  2. PREDNISOLONE [Suspect]
     Route: 065
  3. ACTEMRA [Suspect]
     Indication: RHEUMATOID ARTHRITIS
     Dosage: 680 MG AT 4 PER 52 WEEKS
     Route: 042
     Dates: start: 20110412

REACTIONS (5)
  - Cerebrovascular accident [Unknown]
  - Gait disturbance [Unknown]
  - Paraesthesia [Unknown]
  - Bedridden [Unknown]
  - Pain in extremity [Unknown]
